FAERS Safety Report 7956516-4 (Version None)
Quarter: 2011Q4

REPORT INFORMATION
  Report Type: 
  Country: None (occurrence: None)
  Receive Date: 20111201
  Receipt Date: 20111118
  Transmission Date: 20120403
  Serious: Yes (Life-Threatening, Hospitalization, Other)
  Sender: FDA-Public Use
  Company Number: 2011P1010647

PATIENT
  Age: 30 Year
  Sex: Female

DRUGS (13)
  1. VELCADE [Concomitant]
  2. REBAMIPIDE [Concomitant]
  3. PEPCID [Suspect]
     Indication: PROPHYLAXIS
     Dosage: 20 MG; BID; PO
     Route: 048
     Dates: start: 20110917, end: 20110922
  4. DAIPHEN (SULFAMETHOXAZOLE/ TRIMETHOPRIM) [Concomitant]
  5. SEDEKOPAN (ETIZOLAM) [Concomitant]
  6. DOXORUBICIN HCL [Concomitant]
  7. ONCOVIN [Concomitant]
  8. CYCLOPHOSPHAMIDE [Concomitant]
  9. GRANISETRON  HCL [Concomitant]
  10. AMOBAN (ZOPICLONE) [Concomitant]
  11. PREDNISOLONE [Concomitant]
  12. DEXAMETHASONE SODIUM PHOSPHATE [Concomitant]
  13. MAGLAX (MAGNESIUM OXIDE) [Concomitant]

REACTIONS (3)
  - LOSS OF CONSCIOUSNESS [None]
  - CARDIO-RESPIRATORY ARREST [None]
  - ELECTROCARDIOGRAM QT PROLONGED [None]
